FAERS Safety Report 19183305 (Version 2)
Quarter: 2021Q3

REPORT INFORMATION
  Report Type: Report from Study
  Country: US (occurrence: US)
  Receive Date: 20210427
  Receipt Date: 20210923
  Transmission Date: 20211014
  Serious: Yes (Death, Hospitalization, Other)
  Sender: FDA-Public Use
  Company Number: US-ACADIA PHARMACEUTICALS INC.-ACA-2021-PIM-001295

PATIENT
  Sex: Male

DRUGS (13)
  1. FINASTERIDE. [Concomitant]
     Active Substance: FINASTERIDE
  2. NUPLAZID [Suspect]
     Active Substance: PIMAVANSERIN TARTRATE
     Indication: HALLUCINATION
     Dosage: 34 MILLIGRAM, QD
     Route: 048
  3. CLONAZEPAM. [Concomitant]
     Active Substance: CLONAZEPAM
  4. PEPCID AC [Concomitant]
     Active Substance: FAMOTIDINE
  5. ADVIL [Concomitant]
     Active Substance: IBUPROFEN
  6. ATENOLOL. [Concomitant]
     Active Substance: ATENOLOL
  7. SINEMET [Concomitant]
     Active Substance: CARBIDOPA\LEVODOPA
  8. NITROSTAT [Concomitant]
     Active Substance: NITROGLYCERIN
  9. NUPLAZID [Suspect]
     Active Substance: PIMAVANSERIN TARTRATE
     Indication: DELUSION
  10. AMLODIPINE [Concomitant]
     Active Substance: AMLODIPINE BESYLATE
  11. NUPLAZID [Suspect]
     Active Substance: PIMAVANSERIN TARTRATE
     Indication: PARKINSON^S DISEASE PSYCHOSIS
     Dosage: 34 MILLIGRAM, QD
     Route: 048
     Dates: start: 202102, end: 202104
  12. CARBIDOPA/LEVODOPA [Concomitant]
     Active Substance: CARBIDOPA\LEVODOPA
  13. DONEPEZIL. [Concomitant]
     Active Substance: DONEPEZIL

REACTIONS (8)
  - Therapeutic response unexpected [Unknown]
  - Dysstasia [Not Recovered/Not Resolved]
  - Peripheral swelling [Recovering/Resolving]
  - Urinary incontinence [Unknown]
  - Sarcoma [Recovered/Resolved]
  - Gastric disorder [Unknown]
  - Gait disturbance [Unknown]
  - Thrombosis [Recovered/Resolved]
